FAERS Safety Report 8803657 (Version 1)
Quarter: 2012Q4

REPORT INFORMATION
  Report Type: 
  Country: IN (occurrence: IN)
  Receive Date: 20120924
  Receipt Date: 20120924
  Transmission Date: 20130627
  Serious: Yes (Hospitalization, Other)
  Sender: FDA-Public Use
  Company Number: IN-ACCORD-014685

PATIENT
  Age: 58 Year
  Sex: Male

DRUGS (4)
  1. DOCETAXEL [Suspect]
     Indication: PROSTATE CANCER
     Dosage: Number of courses: 24
     Route: 042
     Dates: start: 20110811
  2. DASATINIB [Suspect]
     Indication: PROSTATE CANCER
     Route: 048
     Dates: start: 20110811
  3. PREDNISONE [Suspect]
     Indication: PROSTATE CANCER
     Dates: start: 20110811
  4. PLACEBO [Suspect]
     Indication: PROSTATE CANCER
     Route: 048
     Dates: start: 20110811

REACTIONS (7)
  - Febrile neutropenia [Recovered/Resolved]
  - Asthenia [Recovered/Resolved]
  - Decreased appetite [Recovered/Resolved]
  - Haematuria [Recovered/Resolved]
  - Abdominal pain [Unknown]
  - Leukopenia [Unknown]
  - Haemoglobin decreased [Unknown]
